FAERS Safety Report 21304221 (Version 1)
Quarter: 2022Q3

REPORT INFORMATION
  Report Type: Spontaneous
  Country: US (occurrence: None)
  Receive Date: 20220907
  Receipt Date: 20220907
  Transmission Date: 20221027
  Serious: No
  Sender: FDA-Public Use
  Company Number: US-ARIS GLOBAL-202107-1133

PATIENT
  Sex: Female

DRUGS (14)
  1. OXERVATE [Suspect]
     Active Substance: CENEGERMIN-BKBJ
     Indication: Neurotrophic keratopathy
     Route: 047
     Dates: start: 20210601
  2. PREDNISOLONE/NEPAFENAC [Concomitant]
  3. SYMLINPEN [Concomitant]
     Active Substance: PRAMLINTIDE ACETATE
     Dosage: 2700/2.7 ML PEN INJECTION
  4. TOUJEO MAX [Concomitant]
     Active Substance: INSULIN GLARGINE
  5. LEVOTHYROXINE [Concomitant]
     Active Substance: LEVOTHYROXINE
  6. ZYRTEC [Concomitant]
     Active Substance: CETIRIZINE HYDROCHLORIDE
  7. OMEPRAZOLE [Concomitant]
     Active Substance: OMEPRAZOLE
     Dosage: DELAYED RELEASE CAPSULE
  8. ROSUVASTATIN CALCIUM [Concomitant]
     Active Substance: ROSUVASTATIN CALCIUM
  9. EFFEXOR XR [Concomitant]
     Active Substance: VENLAFAXINE HYDROCHLORIDE
     Dosage: EXTENDED RELEASE CAPSULE
  10. CARVEDILOL [Concomitant]
     Active Substance: CARVEDILOL
     Dosage: EXTENDED RELEASE CAPSULE
  11. LISINOPRIL [Concomitant]
     Active Substance: LISINOPRIL
  12. NEOSPORIN [Concomitant]
     Active Substance: BACITRACIN ZINC\NEOMYCIN SULFATE\POLYMYXIN B SULFATE
     Dosage: 3.5-400-5K
  13. CALCIUM\CHOLECALCIFEROL [Concomitant]
     Active Substance: CALCIUM\CHOLECALCIFEROL
     Dosage: 600-12.5 MG EXTENDED RELEASE TABLET
  14. VITAMINS [Concomitant]
     Active Substance: VITAMINS

REACTIONS (3)
  - Eye pain [Unknown]
  - Eye irritation [Unknown]
  - Therapy interrupted [Unknown]
